FAERS Safety Report 10897656 (Version 8)
Quarter: 2015Q3

REPORT INFORMATION
  Report Type: Spontaneous
  Country: US (occurrence: US)
  Receive Date: 20150309
  Receipt Date: 20150924
  Transmission Date: 20151125
  Serious: Yes (Other)
  Sender: FDA-Public Use
  Company Number: US-PFIZER INC-2015050868

PATIENT
  Age: 70 Year
  Sex: Male

DRUGS (7)
  1. SUTENT [Suspect]
     Active Substance: SUNITINIB MALATE
     Indication: METASTATIC RENAL CELL CARCINOMA
     Dosage: 50 MG, CYCLIC (28 DAYS ON / 14 DAYS OFF, EVERY 6 WEEKS)
     Route: 048
     Dates: start: 20130801, end: 20150410
  2. HYDROCODONE [Concomitant]
     Active Substance: HYDROCODONE
     Dosage: UNK, AS NEEDED
     Dates: start: 20130601
  3. SUTENT [Suspect]
     Active Substance: SUNITINIB MALATE
     Dosage: 50 MG, CYCLIC (SUTENT, 50 MG 28 DAYS ON/14 DAYS OFF)
     Dates: start: 20130701, end: 20150412
  4. GABAPENTIN. [Concomitant]
     Active Substance: GABAPENTIN
     Dosage: UNK
     Dates: start: 20130601
  5. METFORMIN [Concomitant]
     Active Substance: METFORMIN HYDROCHLORIDE
     Dosage: UNK
     Dates: start: 1998
  6. ASPIRIN. [Concomitant]
     Active Substance: ASPIRIN
     Dosage: UNK
     Dates: start: 1998, end: 20130625
  7. XGEVA [Concomitant]
     Active Substance: DENOSUMAB
     Dosage: EVERY 1-2 MONTHS

REACTIONS (7)
  - Cellulitis [Recovered/Resolved]
  - Hair colour changes [Recovered/Resolved]
  - Swelling face [Recovered/Resolved]
  - Pain in extremity [Not Recovered/Not Resolved]
  - Fatigue [Recovered/Resolved]
  - Gout [Recovered/Resolved]
  - Immune system disorder [Recovered/Resolved]
